FAERS Safety Report 4953776-9 (Version None)
Quarter: 2006Q1

REPORT INFORMATION
  Report Type: 
  Country: None (occurrence: None)
  Receive Date: 20060321
  Receipt Date: 20060310
  Transmission Date: 20060701
  Serious: Yes (Hospitalization, Disabling, Other)
  Sender: FDA-Public Use
  Company Number: 2004AL001672

PATIENT
  Sex: Male

DRUGS (5)
  1. TUSSIN CF [Suspect]
     Indication: HYPERSENSITIVITY
  2. TUSSIN CF [Suspect]
     Indication: INFLUENZA
  3. TUSSIN CF [Suspect]
     Indication: NASOPHARYNGITIS
  4. MOTRIN [Concomitant]
  5. ALLEGRA [Concomitant]

REACTIONS (62)
  - APALLIC SYNDROME [None]
  - APATHY [None]
  - APHASIA [None]
  - ARTERIOSCLEROSIS [None]
  - ASTHENIA [None]
  - BALANCE DISORDER [None]
  - BLOOD CHOLESTEROL INCREASED [None]
  - BLOOD CULTURE POSITIVE [None]
  - BLOOD PRESSURE INCREASED [None]
  - BRAIN OEDEMA [None]
  - BURSITIS [None]
  - CAROTID ARTERY STENOSIS [None]
  - CEREBRAL DISORDER [None]
  - CEREBRAL INFARCTION [None]
  - CEREBRAL ISCHAEMIA [None]
  - CEREBROVASCULAR DISORDER [None]
  - CEREBROVASCULAR SPASM [None]
  - CHEST PAIN [None]
  - COGNITIVE DISORDER [None]
  - COMMUNICATION DISORDER [None]
  - DEPRESSED LEVEL OF CONSCIOUSNESS [None]
  - DIFFICULT TO WEAN FROM VENTILATOR [None]
  - DIPLOPIA [None]
  - DYSARTHRIA [None]
  - DYSPHAGIA [None]
  - ENDOTRACHEAL INTUBATION COMPLICATION [None]
  - EXTRADURAL HAEMATOMA [None]
  - GENERAL PHYSICAL HEALTH DETERIORATION [None]
  - HAEMORRHAGIC STROKE [None]
  - HEADACHE [None]
  - HYPOVENTILATION [None]
  - INCREASED UPPER AIRWAY SECRETION [None]
  - INTRACRANIAL INJURY [None]
  - INTRACRANIAL VENOUS SINUS THROMBOSIS [None]
  - INTRAVENTRICULAR HAEMORRHAGE [None]
  - MOVEMENT DISORDER [None]
  - MUSCULOSKELETAL STIFFNESS [None]
  - NERVOUS SYSTEM DISORDER [None]
  - OPHTHALMOPLEGIA [None]
  - OXYGEN SATURATION DECREASED [None]
  - PAIN [None]
  - PERIARTHRITIS [None]
  - PNEUMONIA ESCHERICHIA [None]
  - POST PROCEDURAL COMPLICATION [None]
  - PROCEDURAL COMPLICATION [None]
  - PUPIL FIXED [None]
  - PUPILLARY DISORDER [None]
  - PUPILLARY REFLEX IMPAIRED [None]
  - PUPILS UNEQUAL [None]
  - PYREXIA [None]
  - RASH [None]
  - RESPIRATORY DISORDER [None]
  - RUPTURED CEREBRAL ANEURYSM [None]
  - SINUS BRADYCARDIA [None]
  - SKIN DISORDER [None]
  - STUPOR [None]
  - SUBDURAL HAEMATOMA [None]
  - SUBDURAL HAEMORRHAGE [None]
  - SUBDURAL HYGROMA [None]
  - VASOSPASM [None]
  - VITH NERVE PARALYSIS [None]
  - VOMITING [None]
